FAERS Safety Report 9707544 (Version 2)
Quarter: 2013Q4

REPORT INFORMATION
  Report Type: Spontaneous
  Country: US (occurrence: US)
  Receive Date: 20131125
  Receipt Date: 20131210
  Transmission Date: 20140711
  Serious: Yes (Other)
  Sender: FDA-Public Use
  Company Number: US-TEVA-375952USA

PATIENT
  Age: 34 Year
  Sex: Female
  Weight: 81.72 kg

DRUGS (2)
  1. PARAGARD 380A [Suspect]
     Indication: CONTRACEPTION
     Route: 015
     Dates: start: 20120731, end: 20121212
  2. NEXIUM [Concomitant]

REACTIONS (4)
  - Vaginal haemorrhage [Not Recovered/Not Resolved]
  - Muscle spasms [Not Recovered/Not Resolved]
  - Menorrhagia [Recovered/Resolved]
  - Dysmenorrhoea [Recovered/Resolved]
